FAERS Safety Report 9036507 (Version 1)
Quarter: 2013Q1

REPORT INFORMATION
  Report Type: Spontaneous
  Country: US (occurrence: None)
  Receive Date: 20130123
  Receipt Date: 20130123
  Transmission Date: 20140127
  Serious: Yes (Other)
  Sender: FDA-Public Use
  Company Number: None

PATIENT
  Age: 50 Year
  Sex: Female
  Weight: 58.97 kg

DRUGS (3)
  1. PRISTIQ [Suspect]
     Indication: MENOPAUSAL SYMPTOMS
     Route: 048
     Dates: start: 20100525, end: 20130125
  2. PRISTIQ [Suspect]
     Indication: IRRITABILITY
     Route: 048
     Dates: start: 20100525, end: 20130125
  3. PRISTIQ [Suspect]
     Indication: HOT FLUSH
     Route: 048
     Dates: start: 20100525, end: 20130125

REACTIONS (8)
  - Affect lability [None]
  - Paraesthesia [None]
  - Dizziness [None]
  - Irritability [None]
  - Hostility [None]
  - Nausea [None]
  - Suicidal ideation [None]
  - Withdrawal syndrome [None]
